FAERS Safety Report 5027810-4 (Version None)
Quarter: 2006Q2

REPORT INFORMATION
  Report Type: 
  Country: None (occurrence: None)
  Receive Date: 20060614
  Receipt Date: 20060614
  Transmission Date: 20061013
  Serious: No
  Sender: FDA-Public Use
  Company Number: None

PATIENT
  Sex: Male

DRUGS (1)
  1. KALETRA [Suspect]
     Indication: HIV INFECTION
     Dosage: 200/50 X 3T BID PO
     Route: 048
     Dates: start: 20060216, end: 20060530

REACTIONS (1)
  - DRUG DISPENSING ERROR [None]
